FAERS Safety Report 6702895-5 (Version None)
Quarter: 2010Q2

REPORT INFORMATION
  Report Type: 
  Country: None (occurrence: None)
  Receive Date: 20100429
  Receipt Date: 20100416
  Transmission Date: 20101027
  Serious: Yes (Other)
  Sender: FDA-Public Use
  Company Number: US-ELI_LILLY_AND_COMPANY-US201004005102

PATIENT
  Age: 74 Year
  Sex: Female
  Weight: 86.168 kg

DRUGS (3)
  1. CYMBALTA [Suspect]
     Dosage: UNK, UNK
     Dates: start: 20100314, end: 20100101
  2. ZOLOFT [Concomitant]
     Indication: ANXIETY
     Dosage: 1 D/F, DAILY (1/D)
     Dates: end: 20100101
  3. LEXAPRO [Concomitant]
     Indication: ANXIETY
     Dosage: 1 D/F, UNKNOWN
     Dates: start: 20100101, end: 20100314

REACTIONS (9)
  - ABDOMINAL PAIN UPPER [None]
  - ABNORMAL DREAMS [None]
  - ANXIETY [None]
  - CONDITION AGGRAVATED [None]
  - GASTRIC DISORDER [None]
  - HALLUCINATION [None]
  - HYPERTENSION [None]
  - INSOMNIA [None]
  - NIGHTMARE [None]
